FAERS Safety Report 14772368 (Version 1)
Quarter: 2018Q2

REPORT INFORMATION
  Report Type: Spontaneous
  Country: FR (occurrence: FR)
  Receive Date: 20180418
  Receipt Date: 20180418
  Transmission Date: 20180711
  Serious: Yes (Hospitalization)
  Sender: FDA-Public Use
  Company Number: FR-CIPLA LTD.-2018FR15279

PATIENT

DRUGS (9)
  1. TRAMADOL. [Suspect]
     Active Substance: TRAMADOL
     Indication: GAIT DISTURBANCE
     Dosage: UNK
     Route: 048
     Dates: end: 20180217
  2. XTANDI [Suspect]
     Active Substance: ENZALUTAMIDE
     Indication: PROSTATE CANCER METASTATIC
     Dosage: 120 MG, DAILY
     Route: 048
     Dates: start: 201708
  3. LIPANTHYL [Suspect]
     Active Substance: FENOFIBRATE
     Indication: DYSLIPIDAEMIA
     Dosage: 145 MG, UNK
     Route: 048
     Dates: end: 20180217
  4. ESOMEPRAZOLE [Suspect]
     Active Substance: ESOMEPRAZOLE
     Indication: PRODUCT USED FOR UNKNOWN INDICATION
     Dosage: UNK
     Route: 048
     Dates: end: 20180217
  5. AMLODIPINE [Suspect]
     Active Substance: AMLODIPINE BESYLATE
     Indication: HYPERTENSION
     Dosage: UNK
     Route: 048
     Dates: end: 20180217
  6. INNOHEP [Suspect]
     Active Substance: TINZAPARIN SODIUM
     Indication: PULMONARY EMBOLISM
     Dosage: 1 DF, DAILY
     Route: 058
     Dates: start: 201709
  7. DECAPEPTYL (ACETATE) [Suspect]
     Active Substance: TRIPTORELIN ACETATE
     Indication: PROSTATE CANCER METASTATIC
     Dosage: 1 DF CYCLICAL
     Route: 030
  8. NOVONORM [Suspect]
     Active Substance: REPAGLINIDE
     Indication: DIABETES MELLITUS
     Dosage: UNK
     Route: 048
     Dates: end: 20180217
  9. ESCITALOPRAM [Suspect]
     Active Substance: ESCITALOPRAM OXALATE
     Indication: DEPRESSION
     Dosage: 10 MG, DAILY
     Route: 048
     Dates: end: 20180217

REACTIONS (1)
  - Cholestasis [Not Recovered/Not Resolved]

NARRATIVE: CASE EVENT DATE: 20180219
